FAERS Safety Report 25163639 (Version 1)
Quarter: 2025Q2

REPORT INFORMATION
  Report Type: Report from Study
  Country: US (occurrence: US)
  Receive Date: 20250405
  Receipt Date: 20250405
  Transmission Date: 20250716
  Serious: Yes (Hospitalization, Other)
  Sender: ABBVIE
  Company Number: US-ABBVIE-6204636

PATIENT
  Sex: Female

DRUGS (1)
  1. RINVOQ [Suspect]
     Active Substance: UPADACITINIB
     Indication: Product used for unknown indication
     Route: 048
     Dates: start: 20241205

REACTIONS (3)
  - Ileostomy [Not Recovered/Not Resolved]
  - Hospitalisation [Not Recovered/Not Resolved]
  - Arthralgia [Not Recovered/Not Resolved]
